FAERS Safety Report 5212993-3 (Version None)
Quarter: 2007Q1

REPORT INFORMATION
  Report Type: 
  Country: None (occurrence: None)
  Receive Date: 20070112
  Receipt Date: 20070103
  Transmission Date: 20070707
  Serious: Yes (Hospitalization, Other)
  Sender: FDA-Public Use
  Company Number: GXKR2007CA00565

PATIENT
  Age: 26 Year
  Sex: Female

DRUGS (3)
  1. SAB-DICLOFENAC (NGX) (DICLOFENAC) SUPPOSITORY [Suspect]
     Indication: BACK PAIN
     Dosage: 100 MG, PRN, RECTAL
     Route: 054
     Dates: start: 20040101
  2. TYLENOL [Concomitant]
  3. CLONAZEPAM [Concomitant]

REACTIONS (7)
  - ANXIETY [None]
  - CONFUSIONAL STATE [None]
  - DEPRESSION SUICIDAL [None]
  - FAECES DISCOLOURED [None]
  - SUICIDAL IDEATION [None]
  - VAGINAL INFECTION [None]
  - VAGINAL ODOUR [None]
